FAERS Safety Report 9216062 (Version 1)
Quarter: 2013Q2

REPORT INFORMATION
  Report Type: Spontaneous
  Country: NL (occurrence: None)
  Receive Date: 20130404
  Receipt Date: 20130404
  Transmission Date: 20140414
  Serious: Yes (Life-Threatening, Hospitalization)
  Sender: FDA-Public Use
  Company Number: DISU20130001

PATIENT
  Age: 67 Year
  Sex: Female

DRUGS (2)
  1. DISULFIRAM [Suspect]
     Indication: ALCOHOL REHABILITATION
  2. WINE [Suspect]
     Indication: ALCOHOL REHABILITATION
     Route: 048

REACTIONS (10)
  - Oxygen saturation decreased [None]
  - Respiratory rate increased [None]
  - Blood pressure decreased [None]
  - Atrial fibrillation [None]
  - Electrocardiogram ST segment abnormal [None]
  - Hypokalaemia [None]
  - Renal failure acute [None]
  - Hypothermia [None]
  - Respiratory failure [None]
  - Drug interaction [None]
